FAERS Safety Report 4464766-7 (Version None)
Quarter: 2004Q4

REPORT INFORMATION
  Report Type: 
  Country: None (occurrence: None)
  Receive Date: 20041004
  Receipt Date: 20040803
  Transmission Date: 20050328
  Serious: No
  Sender: FDA-Public Use
  Company Number: MCN380055

PATIENT
  Sex: Female

DRUGS (1)
  1. COREG [Suspect]
     Indication: ILL-DEFINED DISORDER
     Dosage: 6.25MG TWICE PER DAY
     Route: 048

REACTIONS (3)
  - DYSPNOEA [None]
  - FATIGUE [None]
  - WEIGHT INCREASED [None]
